APPROVED DRUG PRODUCT: FLUCONAZOLE
Active Ingredient: FLUCONAZOLE
Strength: 200MG
Dosage Form/Route: TABLET;ORAL
Application: A076957 | Product #003 | TE Code: AB
Applicant: THINQ PHARMA-CRO PRIVATE LTD
Approved: Sep 28, 2005 | RLD: No | RS: No | Type: RX